FAERS Safety Report 16286650 (Version 2)
Quarter: 2019Q2

REPORT INFORMATION
  Report Type: Spontaneous
  Country: CN (occurrence: CN)
  Receive Date: 20190508
  Receipt Date: 20190513
  Transmission Date: 20190711
  Serious: Yes (Other)
  Sender: FDA-Public Use
  Company Number: CN-ASTRAZENECA-2019SE68826

PATIENT
  Age: 767 Month
  Sex: Female
  Weight: 61.5 kg

DRUGS (3)
  1. TAGRISSO [Concomitant]
     Active Substance: OSIMERTINIB
  2. ZOLADEX [Concomitant]
     Active Substance: GOSERELIN ACETATE
     Indication: BONE DISORDER
     Dosage: ONCE A MONTH
     Dates: start: 201805, end: 201905
  3. IRESSA [Suspect]
     Active Substance: GEFITINIB
     Indication: NON-SMALL CELL LUNG CANCER
     Route: 048
     Dates: start: 201803, end: 201904

REACTIONS (3)
  - Carcinoembryonic antigen increased [Unknown]
  - Metastases to central nervous system [Unknown]
  - Drug resistance [Unknown]

NARRATIVE: CASE EVENT DATE: 201904
